FAERS Safety Report 8062849-6 (Version None)
Quarter: 2012Q1

REPORT INFORMATION
  Report Type: 
  Country: None (occurrence: None)
  Receive Date: 20120123
  Receipt Date: 20120109
  Transmission Date: 20120608
  Serious: Yes (Congenital Anomaly, Other)
  Sender: FDA-Public Use
  Company Number: FR-ROCHE-1028867

PATIENT
  Sex: Female
  Weight: 3.33 kg

DRUGS (4)
  1. CLOZAPINE [Suspect]
     Indication: PRODUCT USED FOR UNKNOWN INDICATION
     Route: 064
     Dates: end: 20110921
  2. DEPAKOTE [Suspect]
     Indication: BIPOLAR DISORDER
     Route: 064
     Dates: end: 20110127
  3. CLONAZEPAM [Suspect]
     Indication: BIPOLAR DISORDER
     Route: 064
     Dates: end: 20110501
  4. ABILIFY [Suspect]
     Indication: PRODUCT USED FOR UNKNOWN INDICATION
     Route: 064
     Dates: end: 20110921

REACTIONS (2)
  - CONGENITAL HYPOTHYROIDISM [None]
  - MATERNAL EXPOSURE TIMING UNSPECIFIED [None]
